FAERS Safety Report 22043676 (Version 2)
Quarter: 2025Q2

REPORT INFORMATION
  Report Type: Spontaneous
  Country: AU (occurrence: AU)
  Receive Date: 20230228
  Receipt Date: 20250620
  Transmission Date: 20250717
  Serious: Yes (Other)
  Sender: ORGANON
  Company Number: AU-ORGANON-O2302AUS002381

PATIENT
  Sex: Female

DRUGS (2)
  1. ETONOGESTREL [Suspect]
     Active Substance: ETONOGESTREL
  2. ETONOGESTREL [Concomitant]
     Active Substance: ETONOGESTREL

REACTIONS (4)
  - Device expulsion [Unknown]
  - Implant site pain [Unknown]
  - Medical device site discomfort [Unknown]
  - Product quality issue [Unknown]
